FAERS Safety Report 5920293-9 (Version None)
Quarter: 2008Q4

REPORT INFORMATION
  Report Type: 
  Country: None (occurrence: None)
  Receive Date: 20081016
  Receipt Date: 20081006
  Transmission Date: 20090506
  Serious: Yes (Other)
  Sender: FDA-Public Use
  Company Number: US-BAYER-200830020NA

PATIENT
  Age: 17 Year
  Sex: Female
  Weight: 46 kg

DRUGS (4)
  1. YASMIN [Suspect]
     Indication: DYSMENORRHOEA
     Route: 048
     Dates: start: 20080721, end: 20080804
  2. ALLEGRA [Concomitant]
     Indication: DRUG USE FOR UNKNOWN INDICATION
     Route: 048
     Dates: start: 20070829, end: 20070901
  3. FLONASE [Concomitant]
     Route: 045
     Dates: start: 20071101, end: 20071201
  4. LORTAB [Concomitant]
     Indication: DYSMENORRHOEA
     Route: 048
     Dates: start: 20060413

REACTIONS (3)
  - DEPRESSION [None]
  - NO ADVERSE EVENT [None]
  - SUICIDAL IDEATION [None]
